FAERS Safety Report 7048425-2 (Version None)
Quarter: 2010Q4

REPORT INFORMATION
  Report Type: 
  Country: None (occurrence: None)
  Receive Date: 20101015
  Receipt Date: 20101015
  Transmission Date: 20110411
  Serious: Yes (Life-Threatening, Hospitalization)
  Sender: FDA-Public Use
  Company Number: None

PATIENT
  Age: 75 Year
  Sex: Female
  Weight: 71.2147 kg

DRUGS (1)
  1. LISINOPRIL [Suspect]
     Indication: BLOOD PRESSURE
     Dosage: 1 PER DAY
     Dates: start: 20100320

REACTIONS (8)
  - COUGH [None]
  - DYSPNOEA [None]
  - FACE OEDEMA [None]
  - FEELING ABNORMAL [None]
  - LIP SWELLING [None]
  - OEDEMA MOUTH [None]
  - SWOLLEN TONGUE [None]
  - TREMOR [None]
